FAERS Safety Report 8386595-4 (Version None)
Quarter: 2012Q2

REPORT INFORMATION
  Report Type: 
  Country: None (occurrence: None)
  Receive Date: 20120525
  Receipt Date: 20120103
  Transmission Date: 20120825
  Serious: No
  Sender: FDA-Public Use
  Company Number: US-GLAXOSMITHKLINE-A0959818A

PATIENT
  Age: 67 Year
  Sex: Male

DRUGS (5)
  1. METFORMIN HCL [Concomitant]
  2. LEVOTHYROXINE SODIUM [Concomitant]
  3. SIMVASTATIN [Concomitant]
  4. VERAMYST [Suspect]
     Indication: COUGH
     Dosage: 1SPR TWICE PER DAY
     Route: 045
     Dates: start: 20111019, end: 20111023
  5. ASPIRIN [Concomitant]

REACTIONS (2)
  - EPISTAXIS [None]
  - PAROSMIA [None]
